FAERS Safety Report 8362806-6 (Version None)
Quarter: 2012Q2

REPORT INFORMATION
  Report Type: 
  Country: None (occurrence: None)
  Receive Date: 20120516
  Receipt Date: 20120510
  Transmission Date: 20120825
  Serious: Yes (Death, Life-Threatening, Other)
  Sender: FDA-Public Use
  Company Number: PHHY2012JP030473

PATIENT
  Sex: Male
  Weight: 66 kg

DRUGS (7)
  1. VENOGLOBULIN [Concomitant]
     Indication: INFECTION
     Dosage: UNK UKN, UNK
     Route: 041
     Dates: start: 20111130, end: 20111202
  2. NEORAL [Suspect]
     Indication: CHRONIC INFLAMMATORY DEMYELINATING POLYRADICULONEUROPATHY
     Dosage: 150 MG,DAILY
     Route: 048
     Dates: start: 20110914, end: 20111129
  3. MEROPENEM [Concomitant]
     Indication: PNEUMONIA
     Dosage: UNK UKN, UNK
     Route: 041
     Dates: start: 20111028, end: 20111107
  4. PREDNISOLONE [Concomitant]
     Indication: CHRONIC INFLAMMATORY DEMYELINATING POLYRADICULONEUROPATHY
     Dosage: 60 MG, DAILY
     Route: 048
     Dates: start: 20110806
  5. VFEND [Concomitant]
     Indication: INFECTION
     Dosage: UNK UKN, UNK
     Route: 041
     Dates: start: 20111201, end: 20111206
  6. RABEPRAZOLE SODIUM [Concomitant]
     Indication: PROPHYLAXIS
     Dosage: UNK UKN, UNK
     Route: 048
     Dates: start: 20110806
  7. PACIL [Concomitant]
     Indication: INFECTION
     Dosage: UNK UKN, UNK
     Route: 041
     Dates: start: 20111028

REACTIONS (6)
  - PNEUMOCYSTIS JIROVECI PNEUMONIA [None]
  - MULTI-ORGAN FAILURE [None]
  - LIVER DISORDER [None]
  - RESPIRATORY FAILURE [None]
  - RENAL DISORDER [None]
  - GASTROENTERITIS NOROVIRUS [None]
